FAERS Safety Report 10163147 (Version 2)
Quarter: 2014Q2

REPORT INFORMATION
  Report Type: Report from Study
  Country: US (occurrence: US)
  Receive Date: 20140509
  Receipt Date: 20140513
  Transmission Date: 20141212
  Serious: Yes (Hospitalization)
  Sender: FDA-Public Use
  Company Number: US-ACTELION-A-NJ2014-98697

PATIENT
  Age: 78 Year
  Sex: Male
  Weight: 61.22 kg

DRUGS (2)
  1. VENTAVIS [Suspect]
     Indication: PULMONARY ARTERIAL HYPERTENSION
     Dosage: 5 MCG, 6-8X DAILY
     Route: 055
     Dates: start: 20120917
  2. SILDENAFIL [Concomitant]
     Dosage: 20 MG, TID
     Route: 048

REACTIONS (4)
  - Atrial fibrillation [Recovering/Resolving]
  - Fluid retention [Recovering/Resolving]
  - Weight increased [Recovering/Resolving]
  - Drug dose omission [Recovered/Resolved]
